FAERS Safety Report 9908282 (Version 1)
Quarter: 2014Q1

REPORT INFORMATION
  Report Type: Report from Study
  Country: BR (occurrence: BR)
  Receive Date: 20140219
  Receipt Date: 20140219
  Transmission Date: 20141002
  Serious: Yes (Other)
  Sender: FDA-Public Use
  Company Number: BR-ROCHE-1348879

PATIENT
  Sex: Female
  Weight: 52 kg

DRUGS (4)
  1. ACTEMRA [Suspect]
     Indication: RHEUMATOID ARTHRITIS
     Route: 065
     Dates: start: 20121201
  2. IBUPROFEN [Concomitant]
  3. DIPYRONE [Concomitant]
  4. PARACETAMOL [Concomitant]

REACTIONS (2)
  - Diarrhoea [Unknown]
  - Intestinal perforation [Unknown]
